FAERS Safety Report 9431031 (Version 1)
Quarter: 2013Q3

REPORT INFORMATION
  Report Type: Other
  Country: US (occurrence: US)
  Receive Date: 20130730
  Receipt Date: 20130730
  Transmission Date: 20140515
  Serious: Yes (Other)
  Sender: FDA-Public Use
  Company Number: US-PURDUE-USA-2013-0105039

PATIENT
  Age: 43 Year
  Sex: Female

DRUGS (1)
  1. OXYCONTIN (NDA 22-272) [Suspect]
     Indication: PAIN
     Dosage: UNKNOWN

REACTIONS (5)
  - Drug abuse [Unknown]
  - Injury [Unknown]
  - Fall [Unknown]
  - Rib fracture [Unknown]
  - Drug tolerance [Unknown]
